FAERS Safety Report 25948943 (Version 1)
Quarter: 2025Q4

REPORT INFORMATION
  Report Type: Spontaneous
  Country: US (occurrence: US)
  Receive Date: 20251022
  Receipt Date: 20251022
  Transmission Date: 20260118
  Serious: Yes (Hospitalization, Other)
  Sender: RADIUS PHARM
  Company Number: US-RADIUS HEALTH INC.-US-RADIUS-25054923

PATIENT
  Sex: Male

DRUGS (1)
  1. TYMLOS [Suspect]
     Active Substance: ABALOPARATIDE
     Indication: Senile osteoporosis
     Dosage: 80 MICROGRAM, QD
     Route: 058
     Dates: start: 20230912

REACTIONS (3)
  - Cardiac failure congestive [Not Recovered/Not Resolved]
  - Heart valve incompetence [Unknown]
  - Atrial fibrillation [Not Recovered/Not Resolved]
